FAERS Safety Report 8116404-X (Version None)
Quarter: 2012Q1

REPORT INFORMATION
  Report Type: 
  Country: None (occurrence: None)
  Receive Date: 20120206
  Receipt Date: 20120130
  Transmission Date: 20120608
  Serious: Yes (Disabling, Other)
  Sender: FDA-Public Use
  Company Number: JP-JNJFOC-20120201984

PATIENT
  Age: 81 Year
  Sex: Female

DRUGS (2)
  1. GALANTAMINE HYDROBROMIDE [Suspect]
     Indication: DEMENTIA ALZHEIMER'S TYPE
     Route: 048
     Dates: start: 20111109
  2. GALANTAMINE HYDROBROMIDE [Suspect]
     Route: 048
     Dates: end: 20120104

REACTIONS (3)
  - MALAISE [None]
  - ASTHMA [None]
  - DYSPNOEA [None]
